FAERS Safety Report 4957964-7 (Version None)
Quarter: 2006Q1

REPORT INFORMATION
  Report Type: 
  Country: None (occurrence: None)
  Receive Date: 20060330
  Receipt Date: 20050906
  Transmission Date: 20060701
  Serious: Yes (Hospitalization, Disabling, Other)
  Sender: FDA-Public Use
  Company Number: US-MERCK-0509USA00912

PATIENT
  Age: 63 Year
  Sex: Male
  Weight: 75 kg

DRUGS (5)
  1. VIOXX [Suspect]
     Indication: ARTHRITIS
     Route: 048
     Dates: start: 20001201, end: 20020401
  2. VIOXX [Suspect]
     Route: 048
     Dates: start: 20020401, end: 20040901
  3. VIOXX [Suspect]
     Indication: BACK PAIN
     Route: 048
     Dates: start: 20001201, end: 20020401
  4. VIOXX [Suspect]
     Route: 048
     Dates: start: 20020401, end: 20040901
  5. TYLENOL (CAPLET) [Concomitant]
     Route: 065

REACTIONS (17)
  - ANGINA PECTORIS [None]
  - ARTERIOSCLEROSIS CORONARY ARTERY [None]
  - CARDIAC FAILURE CONGESTIVE [None]
  - CHEST PAIN [None]
  - CORONARY ARTERY DISEASE [None]
  - CORONARY ARTERY OCCLUSION [None]
  - COUGH [None]
  - HYPERLIPIDAEMIA [None]
  - HYPOTHYROIDISM [None]
  - HYPOXIA [None]
  - INJURY [None]
  - ISCHAEMIC CARDIOMYOPATHY [None]
  - MITRAL VALVE STENOSIS [None]
  - MYOCARDIAL INFARCTION [None]
  - MYOCARDIAL ISCHAEMIA [None]
  - NAUSEA [None]
  - SYNCOPE [None]
